FAERS Safety Report 20166367 (Version 1)
Quarter: 2021Q4

REPORT INFORMATION
  Report Type: Spontaneous
  Country: None (occurrence: US)
  Receive Date: 20211209
  Receipt Date: 20211209
  Transmission Date: 20220303
  Serious: No
  Sender: FDA-Public Use
  Company Number: US-Matrixx Initiatives, Inc.-2122851

PATIENT
  Age: 29 Year
  Sex: Female
  Weight: 63.636 kg

DRUGS (1)
  1. ZICAM INTENSE SINUS RELIEF [Suspect]
     Active Substance: OXYMETAZOLINE HYDROCHLORIDE
     Indication: Sinus congestion
     Route: 045
     Dates: start: 20211202, end: 20211203

REACTIONS (3)
  - Rhinalgia [None]
  - Anosmia [None]
  - Ageusia [None]
